FAERS Safety Report 9676086 (Version 2)
Quarter: 2013Q4

REPORT INFORMATION
  Report Type: Spontaneous
  Country: CN (occurrence: CN)
  Receive Date: 20131107
  Receipt Date: 20131115
  Transmission Date: 20140711
  Serious: Yes (Death, Other)
  Sender: FDA-Public Use
  Company Number: CN-BAXTER-2013BAX043172

PATIENT
  Sex: 0

DRUGS (1)
  1. FLEXBUMIN 25% [Suspect]
     Indication: PRODUCT USED FOR UNKNOWN INDICATION
     Route: 065

REACTIONS (4)
  - Death [Fatal]
  - Pulmonary oedema [Unknown]
  - Hypoproteinaemia [Unknown]
  - Multi-organ failure [Unknown]
